FAERS Safety Report 23126724 (Version 2)
Quarter: 2023Q4

REPORT INFORMATION
  Report Type: Spontaneous
  Country: US (occurrence: US)
  Receive Date: 20231030
  Receipt Date: 20231031
  Transmission Date: 20240110
  Serious: No
  Sender: FDA-Public Use
  Company Number: US-PFIZER INC-PV202300175739

PATIENT
  Sex: Female

DRUGS (2)
  1. ZAVZPRET [Suspect]
     Active Substance: ZAVEGEPANT HYDROCHLORIDE
     Dosage: UNK
     Route: 045
  2. NURTEC ODT [Suspect]
     Active Substance: RIMEGEPANT SULFATE
     Route: 048

REACTIONS (7)
  - Nausea [Unknown]
  - Photophobia [Unknown]
  - Hyperacusis [Unknown]
  - Headache [Unknown]
  - Fatigue [Unknown]
  - Parosmia [Unknown]
  - Therapeutic product effect incomplete [Unknown]
